FAERS Safety Report 9630884 (Version 1)
Quarter: 2013Q4

REPORT INFORMATION
  Report Type: Report from Study
  Country: CZ (occurrence: CZ)
  Receive Date: 20131018
  Receipt Date: 20131018
  Transmission Date: 20140711
  Serious: Yes (Hospitalization)
  Sender: FDA-Public Use
  Company Number: CZ-JNJFOC-20131008470

PATIENT
  Age: 61 Year
  Sex: Female

DRUGS (5)
  1. SIMPONI [Suspect]
     Indication: PSORIATIC ARTHROPATHY
     Route: 058
     Dates: start: 20130409
  2. LANZUL [Concomitant]
     Route: 065
  3. METOJECT [Concomitant]
     Route: 065
  4. ACIDUM FOLICUM [Concomitant]
     Route: 065
  5. PANGROL 20000 [Concomitant]
     Route: 065

REACTIONS (6)
  - Pancreatitis chronic [Recovering/Resolving]
  - Flatulence [Unknown]
  - Cough [Recovering/Resolving]
  - Decreased appetite [Unknown]
  - Constipation [Unknown]
  - Insomnia [Unknown]
